FAERS Safety Report 14426367 (Version 1)
Quarter: 2018Q1

REPORT INFORMATION
  Report Type: Spontaneous
  Country: US (occurrence: US)
  Receive Date: 20180123
  Receipt Date: 20180123
  Transmission Date: 20180509
  Serious: No
  Sender: FDA-Public Use
  Company Number: US-INCYTE CORPORATION-2018IN000479

PATIENT

DRUGS (1)
  1. JAKAFI [Suspect]
     Active Substance: RUXOLITINIB
     Indication: GRAFT VERSUS HOST DISEASE
     Dosage: 5 MG, BID
     Route: 048
     Dates: start: 201708

REACTIONS (11)
  - Adenovirus infection [Unknown]
  - Platelet count decreased [Unknown]
  - Corona virus infection [Unknown]
  - Off label use [Unknown]
  - Vomiting [Recovered/Resolved]
  - Haemoglobin decreased [Unknown]
  - Eating disorder [Unknown]
  - Diarrhoea [Recovered/Resolved]
  - Influenza [Unknown]
  - White blood cell count decreased [Unknown]
  - Red blood cell count decreased [Unknown]
